FAERS Safety Report 8329182-6 (Version None)
Quarter: 2012Q2

REPORT INFORMATION
  Report Type: 
  Country: None (occurrence: None)
  Receive Date: 20120502
  Receipt Date: 20120423
  Transmission Date: 20120825
  Serious: Yes (Hospitalization)
  Sender: FDA-Public Use
  Company Number: FR-PFIZER INC-2012105903

PATIENT
  Age: 65 Year
  Sex: Male

DRUGS (8)
  1. ALDACTONE [Suspect]
     Dosage: 50 MG, 1X/DAY
     Route: 048
  2. PROPRANOLOL [Suspect]
     Dosage: 160 MG, 1X/DAY
     Route: 048
  3. NEXAVAR [Suspect]
     Indication: HEPATIC NEOPLASM MALIGNANT
     Dosage: 200 MG, 2X/DAY
     Route: 048
     Dates: start: 20120113
  4. RASILEZ [Concomitant]
     Dosage: 150 MG, UNK
  5. METFORMINE ^MERCK^ [Concomitant]
  6. AMLODIPINE BESYLATE AND OLMESARTAN MEDOXOMIL [Suspect]
     Dosage: 1 DF, 3X/DAY
     Route: 048
  7. LASIX [Suspect]
     Dosage: 20 MG, 1X/DAY
     Route: 048
  8. GLICLAZIDE [Concomitant]
     Dosage: 30 MG, UNK

REACTIONS (1)
  - PAIN IN EXTREMITY [None]
